FAERS Safety Report 4911728-9 (Version None)
Quarter: 2006Q1

REPORT INFORMATION
  Report Type: 
  Country: None (occurrence: None)
  Receive Date: 20060213
  Receipt Date: 20060130
  Transmission Date: 20060701
  Serious: Yes (Hospitalization)
  Sender: FDA-Public Use
  Company Number: B0409265A

PATIENT
  Age: 4 Year
  Sex: 0

DRUGS (3)
  1. WARFARIN SODIUM [Suspect]
  2. AUGMENTIN '250' [Suspect]
  3. CLINDAMYCIN [Suspect]

REACTIONS (1)
  - INTERNATIONAL NORMALISED RATIO INCREASED [None]
